FAERS Safety Report 6313417-5 (Version None)
Quarter: 2009Q3

REPORT INFORMATION
  Report Type: 
  Country: None (occurrence: None)
  Receive Date: 20090814
  Receipt Date: 20090814
  Transmission Date: 20100115
  Serious: No
  Sender: FDA-Public Use
  Company Number: None

PATIENT
  Age: 41 Year
  Sex: Male
  Weight: 79.3795 kg

DRUGS (1)
  1. LEVAQUIN [Suspect]
     Indication: SINUSITIS
     Dosage: 250G 3X PER DAY PO
     Route: 048
     Dates: start: 20081201, end: 20081211

REACTIONS (4)
  - CARPAL TUNNEL SYNDROME [None]
  - MUSCLE RUPTURE [None]
  - TENDON RUPTURE [None]
  - TENDONITIS [None]
